FAERS Safety Report 7762710-8 (Version None)
Quarter: 2011Q3

REPORT INFORMATION
  Report Type: 
  Country: None (occurrence: None)
  Receive Date: 20110920
  Receipt Date: 20110914
  Transmission Date: 20111222
  Serious: Yes (Other)
  Sender: FDA-Public Use
  Company Number: US-PFIZER INC-2011218569

PATIENT
  Sex: Female
  Weight: 59 kg

DRUGS (2)
  1. DILANTIN [Suspect]
     Indication: EPILEPSY
     Dosage: 100 MG OF THREE CAPSULES ON ONE DAY AND 100 MG OF FOUR CAPSULES ON THE OTHER DAY
     Route: 048
  2. PRIMIDONE [Concomitant]
     Indication: EPILEPSY
     Dosage: UNK

REACTIONS (1)
  - HYPERTHYROIDISM [None]
